FAERS Safety Report 5261416-7 (Version None)
Quarter: 2007Q1

REPORT INFORMATION
  Report Type: 
  Country: None (occurrence: None)
  Receive Date: 20070307
  Receipt Date: 20070220
  Transmission Date: 20070707
  Serious: Yes (Hospitalization)
  Sender: FDA-Public Use
  Company Number: 2006002358

PATIENT
  Sex: Female

DRUGS (6)
  1. TARCEVA [Suspect]
     Indication: NON-SMALL CELL LUNG CANCER
     Dosage: ORAL
     Route: 048
     Dates: start: 20061117
  2. DEXAMETHASONE TAB [Concomitant]
  3. OXYCODONE HCL [Concomitant]
  4. ACETAMINOPHEN [Concomitant]
  5. FENTANYL [Concomitant]
  6. GABAPENTIN [Concomitant]

REACTIONS (4)
  - AGITATION [None]
  - PARAESTHESIA [None]
  - RESTLESSNESS [None]
  - TREMOR [None]
